FAERS Safety Report 11594467 (Version 3)
Quarter: 2015Q4

REPORT INFORMATION
  Report Type: Spontaneous
  Country: FR (occurrence: FR)
  Receive Date: 20151005
  Receipt Date: 20151109
  Transmission Date: 20160304
  Serious: Yes (Death, Life-Threatening, Other)
  Sender: FDA-Public Use
  Company Number: FR-BAXALTA-2015BLT001930

PATIENT
  Age: 75 Year
  Sex: Male

DRUGS (24)
  1. FEIBA [Suspect]
     Active Substance: ANTI-INHIBITOR COAGULANT COMPLEX
     Dosage: UNK
     Route: 042
     Dates: start: 20150720, end: 20150721
  2. NOVOSEVEN [Suspect]
     Active Substance: COAGULATION FACTOR VIIA RECOMBINANT HUMAN
     Dosage: 5 MG, 3X A DAY
     Route: 042
     Dates: start: 20150804, end: 20150807
  3. FEIBA [Suspect]
     Active Substance: ANTI-INHIBITOR COAGULANT COMPLEX
     Dosage: UNK
     Dates: start: 20150716, end: 20150716
  4. FEIBA [Suspect]
     Active Substance: ANTI-INHIBITOR COAGULANT COMPLEX
     Dosage: UNK
     Route: 042
     Dates: start: 20150717, end: 20150721
  5. NOVOSEVEN [Suspect]
     Active Substance: COAGULATION FACTOR VIIA RECOMBINANT HUMAN
     Dosage: UNK
     Dates: start: 20150731, end: 20150731
  6. LASILIX [Concomitant]
     Active Substance: FUROSEMIDE
     Indication: DRUG THERAPY
     Dosage: UNK
     Route: 065
  7. FEIBA [Suspect]
     Active Substance: ANTI-INHIBITOR COAGULANT COMPLEX
     Dosage: 6000 U, 1X A DAY
     Route: 042
     Dates: start: 20150803, end: 20150803
  8. NOVOSEVEN [Suspect]
     Active Substance: COAGULATION FACTOR VIIA RECOMBINANT HUMAN
     Dosage: 6 MG, 4X A DAY
     Route: 042
     Dates: start: 20150801, end: 20150802
  9. FEIBA [Suspect]
     Active Substance: ANTI-INHIBITOR COAGULANT COMPLEX
     Dosage: UNK
     Dates: start: 20150716, end: 20150716
  10. FEIBA [Suspect]
     Active Substance: ANTI-INHIBITOR COAGULANT COMPLEX
     Dosage: 4000 U, 3X A DAY
     Route: 042
     Dates: start: 20150804, end: 20150807
  11. NOVOSEVEN [Suspect]
     Active Substance: COAGULATION FACTOR VIIA RECOMBINANT HUMAN
     Dosage: UNK
     Dates: start: 20150801, end: 20150802
  12. FEIBA [Suspect]
     Active Substance: ANTI-INHIBITOR COAGULANT COMPLEX
     Indication: HAEMORRHAGE
     Dosage: 5000 U, 2X A DAY
     Route: 042
     Dates: start: 20150715, end: 20150715
  13. FEIBA [Suspect]
     Active Substance: ANTI-INHIBITOR COAGULANT COMPLEX
     Dosage: 4000 U, 3X A DAY
     Route: 042
     Dates: start: 20150722, end: 20150731
  14. NOVOSEVEN [Suspect]
     Active Substance: COAGULATION FACTOR VIIA RECOMBINANT HUMAN
     Dosage: 6 MG, 3X A DAY
     Route: 042
     Dates: start: 20150731, end: 20150731
  15. NOVOSEVEN [Suspect]
     Active Substance: COAGULATION FACTOR VIIA RECOMBINANT HUMAN
     Dosage: UNK
     Dates: start: 20150803, end: 20150803
  16. KARDEGIC [Concomitant]
     Active Substance: ASPIRIN LYSINE
     Indication: DRUG THERAPY
     Dosage: UNK
     Route: 065
     Dates: end: 20150709
  17. NOVOSEVEN [Suspect]
     Active Substance: COAGULATION FACTOR VIIA RECOMBINANT HUMAN
     Indication: HAEMORRHAGE
     Dosage: 5 MG, 3X A DAY
     Route: 042
     Dates: start: 20150729, end: 20150730
  18. NOVOSEVEN [Suspect]
     Active Substance: COAGULATION FACTOR VIIA RECOMBINANT HUMAN
     Dosage: 6 MG, 6X A DAY
     Route: 042
     Dates: start: 20150803, end: 20150803
  19. EUPRESSYL [Concomitant]
     Active Substance: URAPIDIL
     Indication: DRUG THERAPY
     Dosage: UNK
     Route: 065
  20. FEIBA [Suspect]
     Active Substance: ANTI-INHIBITOR COAGULANT COMPLEX
     Dosage: UNK
     Dates: start: 20150715
  21. FEIBA [Suspect]
     Active Substance: ANTI-INHIBITOR COAGULANT COMPLEX
     Dosage: 5000 U, 2X A DAY
     Route: 042
     Dates: start: 20150716, end: 20150716
  22. DAFALGAN [Concomitant]
     Active Substance: ACETAMINOPHEN
     Indication: DRUG THERAPY
     Dosage: UNK
     Route: 065
  23. FACTOR VIII [Concomitant]
     Active Substance: ANTIHEMOPHILIC FACTOR HUMAN
     Indication: HAEMORRHAGE
     Dosage: UNK
     Route: 065
     Dates: start: 20150714, end: 20150714
  24. FACTOR IX [Concomitant]
     Indication: HAEMORRHAGE

REACTIONS (4)
  - Disseminated intravascular coagulation [Unknown]
  - Acute respiratory distress syndrome [Fatal]
  - Drug ineffective [Fatal]
  - Shock haemorrhagic [Fatal]

NARRATIVE: CASE EVENT DATE: 20150714
